FAERS Safety Report 6049362-2 (Version None)
Quarter: 2009Q1

REPORT INFORMATION
  Report Type: 
  Country: None (occurrence: None)
  Receive Date: 20090123
  Receipt Date: 20081223
  Transmission Date: 20090719
  Serious: Yes (Other)
  Sender: FDA-Public Use
  Company Number: US-PFIZER INC-2008061125

PATIENT
  Sex: Female
  Weight: 66 kg

DRUGS (1)
  1. CHANTIX [Suspect]
     Dosage: UNK
     Route: 048
     Dates: start: 20071213

REACTIONS (9)
  - ABNORMAL BEHAVIOUR [None]
  - AGGRESSION [None]
  - DEPRESSION [None]
  - EMOTIONAL DISORDER [None]
  - HOSPITALISATION [None]
  - MOOD SWINGS [None]
  - MULTIPLE INJURIES [None]
  - PANIC ATTACK [None]
  - SUICIDE ATTEMPT [None]
